FAERS Safety Report 14194424 (Version 2)
Quarter: 2017Q4

REPORT INFORMATION
  Report Type: Spontaneous
  Country: US (occurrence: US)
  Receive Date: 20171116
  Receipt Date: 20171121
  Transmission Date: 20180321
  Serious: No
  Sender: FDA-Public Use
  Company Number: US-PFIZER INC-2017494340

PATIENT
  Sex: Female

DRUGS (1)
  1. RIFABUTIN. [Suspect]
     Active Substance: RIFABUTIN
     Indication: LUNG INFECTION
     Dosage: 300 MG, UNK

REACTIONS (2)
  - Gastrointestinal disorder [Unknown]
  - Blood test abnormal [Unknown]
